FAERS Safety Report 7732987-3 (Version None)
Quarter: 2011Q3

REPORT INFORMATION
  Report Type: 
  Country: None (occurrence: None)
  Receive Date: 20110907
  Receipt Date: 20110825
  Transmission Date: 20111222
  Serious: Yes (Other)
  Sender: FDA-Public Use
  Company Number: JP-JNJFOC-20110812550

PATIENT
  Age: 22 Year
  Sex: Male

DRUGS (1)
  1. INVEGA [Suspect]
     Indication: SCHIZOPHRENIA
     Route: 048

REACTIONS (3)
  - SEPSIS [None]
  - DYSPHAGIA [None]
  - PNEUMONIA ASPIRATION [None]
